FAERS Safety Report 20614014 (Version 2)
Quarter: 2023Q1

REPORT INFORMATION
  Report Type: Spontaneous
  Country: US (occurrence: US)
  Receive Date: 20220319
  Receipt Date: 20230116
  Transmission Date: 20230417
  Serious: No
  Sender: FDA-Public Use
  Company Number: US-BIOGEN-2022BI01106812

PATIENT
  Age: 50 Year
  Sex: Female

DRUGS (1)
  1. TECFIDERA [Suspect]
     Active Substance: DIMETHYL FUMARATE
     Indication: Product used for unknown indication
     Route: 050
     Dates: start: 202001

REACTIONS (6)
  - Product dose omission issue [Unknown]
  - Abdominal discomfort [Unknown]
  - Influenza [Unknown]
  - Tremor [Unknown]
  - Infection [Unknown]
  - Flushing [Unknown]

NARRATIVE: CASE EVENT DATE: 20220316
